FAERS Safety Report 14198793 (Version 4)
Quarter: 2020Q4

REPORT INFORMATION
  Report Type: Spontaneous
  Country: US (occurrence: US)
  Receive Date: 20171117
  Receipt Date: 20201125
  Transmission Date: 20210113
  Serious: No
  Sender: FDA-Public Use
  Company Number: US-PFIZER INC-2017348993

PATIENT
  Age: 76 Year
  Sex: Female

DRUGS (3)
  1. IBRANCE [Suspect]
     Active Substance: PALBOCICLIB
     Indication: BREAST CANCER FEMALE
  2. IBRANCE [Suspect]
     Active Substance: PALBOCICLIB
     Indication: MALIGNANT PLEURAL EFFUSION
     Dosage: 100 MG, CYCLIC (QD FOR 21 DAYS ON + 7 DAYS OFF) (ONCE DAILY FOR 21 DAYS)
     Route: 048
     Dates: start: 201706
  3. FASLODEX [Concomitant]
     Active Substance: FULVESTRANT
     Dosage: UNK
     Dates: start: 201706

REACTIONS (4)
  - Bone pain [Not Recovered/Not Resolved]
  - Dry skin [Unknown]
  - Visual impairment [Unknown]
  - Asthenia [Unknown]

NARRATIVE: CASE EVENT DATE: 201806
